FAERS Safety Report 9386023 (Version 1)
Quarter: 2013Q3

REPORT INFORMATION
  Report Type: Spontaneous
  Country: US (occurrence: US)
  Receive Date: 20130705
  Receipt Date: 20130705
  Transmission Date: 20140515
  Serious: Yes (Hospitalization, Other)
  Sender: FDA-Public Use
  Company Number: US-ABBOTT-13P-163-1112851-00

PATIENT
  Age: 51 Year
  Sex: Female
  Weight: 118.04 kg

DRUGS (5)
  1. SYNTHROID [Suspect]
     Indication: HYPOTHYROIDISM
     Dosage: IN AM
     Route: 048
     Dates: start: 2003, end: 2013
  2. SYNTHROID [Suspect]
     Dosage: STOPPED MEDICATION AND RESTARTED AFTER A FEW DAYS, RECENTLY.
     Route: 048
     Dates: start: 2013
  3. SYMBICORT [Concomitant]
     Indication: ASTHMA
  4. ALBUTEROL [Concomitant]
     Indication: ASTHMA
  5. CLARITIN [Concomitant]
     Indication: PRURITUS

REACTIONS (8)
  - Arthralgia [Recovering/Resolving]
  - Pruritus [Not Recovered/Not Resolved]
  - Flatulence [Not Recovered/Not Resolved]
  - Abdominal pain [Not Recovered/Not Resolved]
  - Abdominal distension [Not Recovered/Not Resolved]
  - Arthralgia [Recovering/Resolving]
  - Arthritis infective [Recovered/Resolved]
  - Gastric disorder [Recovering/Resolving]
